FAERS Safety Report 12001244 (Version 1)
Quarter: 2016Q1

REPORT INFORMATION
  Report Type: Spontaneous
  Country: GB (occurrence: GB)
  Receive Date: 20160204
  Receipt Date: 20160204
  Transmission Date: 20160526
  Serious: Yes (Hospitalization, Other)
  Sender: FDA-Public Use
  Company Number: GB-ASTRAZENECA-2016SE10238

PATIENT
  Age: 51 Year
  Sex: Male
  Weight: 119 kg

DRUGS (11)
  1. CEFALEXIN [Concomitant]
     Active Substance: CEPHALEXIN
     Dates: start: 20160104, end: 20160111
  2. CITALOPRAM [Concomitant]
     Active Substance: CITALOPRAM HYDROBROMIDE
     Dosage: USE AS DIRECTED
     Dates: start: 20141217
  3. LACRI-LUBE [Concomitant]
     Dates: start: 20150827
  4. METFORMIN [Concomitant]
     Active Substance: METFORMIN HYDROCHLORIDE
     Dosage: 2 DOSAGE FORM, 2 IN THE MORNING AND 2 IN THE EVENING
     Dates: start: 20141217
  5. GABAPENTIN. [Concomitant]
     Active Substance: GABAPENTIN
     Dosage: 5 DOSAGE FORM, 2 IN THE MORNING, 1 AT MIDDAY AND 2 AT NIGHT
     Dates: start: 20150827
  6. HYPROMELLOSE [Concomitant]
     Active Substance: HYPROMELLOSES
     Dates: start: 20150827
  7. METRONIDAZOLE. [Concomitant]
     Active Substance: METRONIDAZOLE
     Dates: start: 20160104, end: 20160111
  8. OMEPRAZOLE. [Concomitant]
     Active Substance: OMEPRAZOLE
     Dates: start: 20141217
  9. PRAVASTATIN [Concomitant]
     Active Substance: PRAVASTATIN\PRAVASTATIN SODIUM
     Dates: start: 20150827
  10. GLIMEPIRIDE. [Concomitant]
     Active Substance: GLIMEPIRIDE
     Dates: start: 20141217, end: 20160104
  11. DAPAGLIFLOZIN [Suspect]
     Active Substance: DAPAGLIFLOZIN
     Route: 048
     Dates: start: 20160104

REACTIONS (1)
  - Pancreatitis acute [Recovering/Resolving]

NARRATIVE: CASE EVENT DATE: 20160112
